FAERS Safety Report 24662199 (Version 9)
Quarter: 2025Q3

REPORT INFORMATION
  Report Type: Report from Study
  Country: US (occurrence: US)
  Receive Date: 20241125
  Receipt Date: 20250924
  Transmission Date: 20251021
  Serious: Yes (Other)
  Sender: SUNOVION
  Company Number: US-SUMITOMO PHARMA SWITZERLAND GMBH-2024SPA005184

PATIENT
  Age: 72 Year
  Sex: Male

DRUGS (17)
  1. ORGOVYX [Suspect]
     Active Substance: RELUGOLIX
     Indication: Prostate cancer
     Dosage: 360 MG, SINGLE
     Route: 048
     Dates: start: 202411, end: 202411
  2. ORGOVYX [Suspect]
     Active Substance: RELUGOLIX
     Dosage: 120 MG, QD
     Route: 048
     Dates: start: 202411
  3. AMIODARONE [Concomitant]
     Active Substance: AMIODARONE
  4. FUROSEMIDE [Concomitant]
     Active Substance: FUROSEMIDE
  5. ASPIRIN [Concomitant]
     Active Substance: ASPIRIN
  6. HYDROCODONE BITARTRATE AND ACETAMINOPHEN [Concomitant]
     Active Substance: ACETAMINOPHEN\HYDROCODONE BITARTRATE
  7. CARVEDILOL [Concomitant]
     Active Substance: CARVEDILOL
  8. LEVETIRACETAM [Concomitant]
     Active Substance: LEVETIRACETAM
  9. DOCUSATE [Concomitant]
     Active Substance: DOCUSATE
  10. TAMSULOSIN [Concomitant]
     Active Substance: TAMSULOSIN
  11. ELIGARD [Concomitant]
     Active Substance: LEUPROLIDE ACETATE
     Route: 058
  12. XTANDI [Concomitant]
     Active Substance: ENZALUTAMIDE
  13. ENTRESTO [Concomitant]
     Active Substance: SACUBITRIL\VALSARTAN
  14. BRIMONIDINE TARTRATE [Concomitant]
     Active Substance: BRIMONIDINE TARTRATE
     Route: 047
  15. QUETIAPINE FUMARATE [Concomitant]
     Active Substance: QUETIAPINE FUMARATE
  16. SIMVASTATIN [Concomitant]
     Active Substance: SIMVASTATIN
  17. NORCO [Concomitant]
     Active Substance: ACETAMINOPHEN\HYDROCODONE BITARTRATE

REACTIONS (11)
  - Prostate cancer [Unknown]
  - Hallucination, visual [Unknown]
  - Feeling cold [Unknown]
  - Pruritus [Unknown]
  - Chromaturia [Unknown]
  - Pain [Unknown]
  - Peripheral swelling [Unknown]
  - Back pain [Unknown]
  - Hot flush [Unknown]
  - Pain in extremity [Unknown]
  - Arthralgia [Unknown]
